FAERS Safety Report 23697147 (Version 1)
Quarter: 2024Q2

REPORT INFORMATION
  Report Type: Spontaneous
  Country: US (occurrence: None)
  Receive Date: 20240401
  Receipt Date: 20240401
  Transmission Date: 20240716
  Serious: No
  Sender: FDA-Public Use
  Company Number: None

PATIENT
  Age: 83 Year
  Sex: Female

DRUGS (1)
  1. LEVOFLOXACIN [Suspect]
     Active Substance: LEVOFLOXACIN
     Indication: Skin infection
     Dosage: FREQUENCY : DAILY?
     Route: 048
     Dates: start: 20240329, end: 20240331

REACTIONS (4)
  - Dyspnoea [None]
  - Pain in extremity [None]
  - Memory impairment [None]
  - Fatigue [None]

NARRATIVE: CASE EVENT DATE: 20240329
